FAERS Safety Report 8550486-6 (Version None)
Quarter: 2012Q3

REPORT INFORMATION
  Report Type: 
  Country: None (occurrence: None)
  Receive Date: 20120730
  Receipt Date: 20120716
  Transmission Date: 20120928
  Serious: Yes (Other)
  Sender: FDA-Public Use
  Company Number: GB-ELI_LILLY_AND_COMPANY-GB201207004965

PATIENT
  Age: 10 Year
  Sex: Male

DRUGS (2)
  1. ATOMOXETINE HYDROCHLORIDE [Suspect]
     Dosage: 25MG, DAILY
  2. ATOMOXETINE HYDROCHLORIDE [Suspect]
     Indication: ATTENTION DEFICIT/HYPERACTIVITY DISORDER
     Dosage: 10MG, DAILY

REACTIONS (6)
  - LONG QT SYNDROME [None]
  - PARAESTHESIA [None]
  - ELECTROCARDIOGRAM QT PROLONGED [None]
  - DYSPNOEA [None]
  - TACHYCARDIA [None]
  - CHEST PAIN [None]
